FAERS Safety Report 9337929 (Version 5)
Quarter: 2013Q4

REPORT INFORMATION
  Report Type: Spontaneous
  Country: US (occurrence: US)
  Receive Date: 20130610
  Receipt Date: 20131212
  Transmission Date: 20140711
  Serious: Yes (Hospitalization, Other)
  Sender: FDA-Public Use
  Company Number: US-MERCK-1305USA017833

PATIENT
  Sex: Female
  Weight: 72.56 kg

DRUGS (4)
  1. FOSAMAX [Suspect]
     Indication: OSTEOPOROSIS
     Dosage: 35 MG, QW
     Route: 048
     Dates: end: 20080229
  2. FOSAMAX [Suspect]
     Indication: OSTEOPENIA
  3. ALENDRONATE SODIUM [Suspect]
     Indication: OSTEOPOROSIS
     Dosage: 35 MG, QW
     Route: 048
     Dates: start: 200802, end: 201106
  4. CALCIUM (UNSPECIFIED) (+) VITAMIN D (UNSPECIFIED) [Concomitant]
     Indication: OSTEOPENIA
     Dosage: 600 MG, BID
     Dates: start: 200506

REACTIONS (19)
  - Femoral neck fracture [Unknown]
  - Hip arthroplasty [Unknown]
  - Rib fracture [Unknown]
  - Foot fracture [Unknown]
  - Malignant melanoma [Unknown]
  - Hypertension [Unknown]
  - Adverse event [Unknown]
  - Osteoarthritis [Unknown]
  - Intervertebral disc disorder [Unknown]
  - Hysterectomy [Unknown]
  - Lower limb fracture [Unknown]
  - Upper limb fracture [Unknown]
  - Hypothyroidism [Unknown]
  - Rib fracture [Unknown]
  - Cancer surgery [Unknown]
  - Muscle atrophy [Unknown]
  - Diverticulum intestinal [Unknown]
  - Lymphadenopathy [Unknown]
  - Perineurial cyst [Unknown]
